FAERS Safety Report 4503386-2 (Version None)
Quarter: 2004Q4

REPORT INFORMATION
  Report Type: 
  Country: None (occurrence: None)
  Receive Date: 20041117
  Receipt Date: 20040921
  Transmission Date: 20050328
  Serious: Yes (Hospitalization)
  Sender: FDA-Public Use
  Company Number: SE-GLAXOSMITHKLINE-B0346684A

PATIENT
  Age: 4 Week
  Sex: Female

DRUGS (2)
  1. LAMICTAL [Suspect]
  2. LAMICTAL [Suspect]

REACTIONS (6)
  - DRUG EXPOSURE DURING PREGNANCY [None]
  - DRUG EXPOSURE VIA BREAST MILK [None]
  - FATIGUE [None]
  - HYPERSOMNIA [None]
  - WEIGHT DECREASED [None]
  - WEIGHT GAIN POOR [None]
